FAERS Safety Report 9914302 (Version 1)
Quarter: 2014Q1

REPORT INFORMATION
  Report Type: Spontaneous
  Country: US (occurrence: None)
  Receive Date: 20140219
  Receipt Date: 20140219
  Transmission Date: 20141002
  Serious: Yes (Hospitalization, Disabling, Other)
  Sender: FDA-Public Use
  Company Number: None

PATIENT
  Age: 34 Year
  Sex: Female
  Weight: 65.77 kg

DRUGS (1)
  1. GILENYA (FINFOLIMOD) [Suspect]
     Indication: RELAPSING-REMITTING MULTIPLE SCLEROSIS
     Dosage: TAKEN BY MOUTH
     Dates: start: 20130818, end: 20131116

REACTIONS (7)
  - Insomnia [None]
  - Anxiety [None]
  - Panic attack [None]
  - Convulsion [None]
  - Dyspnoea [None]
  - Palpitations [None]
  - Gastrointestinal disorder [None]
